FAERS Safety Report 18176116 (Version 2)
Quarter: 2020Q4

REPORT INFORMATION
  Report Type: Spontaneous
  Country: US (occurrence: US)
  Receive Date: 20200820
  Receipt Date: 20201008
  Transmission Date: 20210113
  Serious: No
  Sender: FDA-Public Use
  Company Number: US-LEXICON PHARMACEUTICALS, INC-20-1606-00655

PATIENT
  Age: 70 Year
  Sex: Female

DRUGS (1)
  1. XERMELO [Suspect]
     Active Substance: TELOTRISTAT ETHYL
     Indication: CARCINOID SYNDROME
     Dates: start: 20200606

REACTIONS (5)
  - Product dose omission issue [Recovered/Resolved]
  - Weight increased [Not Recovered/Not Resolved]
  - Flushing [Not Recovered/Not Resolved]
  - Alopecia [Not Recovered/Not Resolved]
  - Nausea [Not Recovered/Not Resolved]

NARRATIVE: CASE EVENT DATE: 20200622
